FAERS Safety Report 24948341 (Version 2)
Quarter: 2025Q1

REPORT INFORMATION
  Report Type: Report from Study
  Country: US (occurrence: US)
  Receive Date: 20250210
  Receipt Date: 20250213
  Transmission Date: 20250408
  Serious: Yes (Life-Threatening)
  Sender: BAUSCH AND LOMB
  Company Number: US-BAUSCH-BL-2025-001320

PATIENT
  Age: 58 Year
  Sex: Female

DRUGS (22)
  1. XIFAXAN [Suspect]
     Active Substance: RIFAXIMIN
     Indication: Product used for unknown indication
     Dosage: TAKE 1 TABLET BY MOUTH 2 TIMES A DAY
     Route: 048
     Dates: start: 20231201, end: 20241220
  2. XIFAXAN [Suspect]
     Active Substance: RIFAXIMIN
     Dosage: TAKE 1 TABLET BY MOUTH 2 TIMES A DAY
     Route: 048
     Dates: end: 202502
  3. COREG [Suspect]
     Active Substance: CARVEDILOL
     Indication: Extravascular haemolysis
     Dosage: 2 TIMES DAILY
     Route: 048
  4. COREG [Suspect]
     Active Substance: CARVEDILOL
     Indication: Prophylaxis
     Dosage: TAKE 1 TABLET BY MOUTH 2 TIMES A DAY
     Route: 048
     Dates: start: 20240731, end: 20241220
  5. LASIX [Concomitant]
     Active Substance: FUROSEMIDE
     Indication: Product used for unknown indication
     Route: 048
     Dates: start: 20230531, end: 20240802
  6. KRISTALOSE [Concomitant]
     Active Substance: LACTULOSE
     Indication: Product used for unknown indication
     Route: 048
     Dates: start: 20240731, end: 20241220
  7. CALCIUM 600/D3 [Concomitant]
     Indication: Product used for unknown indication
     Route: 048
  8. ZYRTEC [Concomitant]
     Active Substance: CETIRIZINE HYDROCHLORIDE
     Indication: Product used for unknown indication
     Route: 048
  9. RESTASIS OPHT [Concomitant]
     Indication: Product used for unknown indication
     Route: 047
  10. DEXILANT [Concomitant]
     Active Substance: DEXLANSOPRAZOLE
     Indication: Product used for unknown indication
     Route: 048
  11. VOLTAREN [Concomitant]
     Active Substance: DICLOFENAC SODIUM
     Indication: Product used for unknown indication
     Route: 061
  12. LEVOTHYROXINE [Concomitant]
     Active Substance: LEVOTHYROXINE
     Indication: Product used for unknown indication
     Route: 048
     Dates: start: 20180515
  13. LEVOTHYROXINE [Concomitant]
     Active Substance: LEVOTHYROXINE
     Route: 048
     Dates: start: 20230531
  14. GLUCOPHAGE [Concomitant]
     Active Substance: METFORMIN HYDROCHLORIDE
     Indication: Product used for unknown indication
     Dosage: TAKE 500 MG BY MOUTH 2 TIMES A DAY
     Route: 048
  15. SINGULAIR [Concomitant]
     Active Substance: MONTELUKAST SODIUM
     Indication: Product used for unknown indication
     Route: 048
  16. PATADAY OPHT [Concomitant]
     Indication: Product used for unknown indication
     Dosage: APPLY TO EYE ONE TIME A DAY
     Route: 047
  17. ZOFRAN [Concomitant]
     Active Substance: ONDANSETRON HYDROCHLORIDE
     Indication: Product used for unknown indication
     Dosage: TAKE 1 TABLET BY MOUTH EVERY 8 HOURS (PATIENT TAKING DIFFERENTLY: TAKE 4 MG AS NEEDED FOR NAUSEA)
     Route: 048
     Dates: start: 20160304
  18. K-DUR [Concomitant]
     Active Substance: POTASSIUM CHLORIDE
     Indication: Product used for unknown indication
     Dosage: EXTENDED-RELEASE TABLET, TAKE 1 TABLET BY MOUTH DAILY
     Route: 048
     Dates: start: 20140611
  19. ALDACTONE [Concomitant]
     Active Substance: SPIRONOLACTONE
     Indication: Product used for unknown indication
     Route: 048
     Dates: start: 20220103
  20. ASTELIN [Concomitant]
     Active Substance: AZELASTINE HYDROCHLORIDE
     Indication: Product used for unknown indication
     Route: 045
  21. BIOTIN ORAL [Concomitant]
     Indication: Product used for unknown indication
     Route: 048
  22. PLAQUENIL [Concomitant]
     Active Substance: HYDROXYCHLOROQUINE SULFATE
     Indication: Product used for unknown indication
     Dosage: TAKE 200 MG BY MOUTH 2 TIMES A DAY
     Route: 048

REACTIONS (4)
  - Fall [Unknown]
  - Dizziness [Unknown]
  - Peripheral swelling [Unknown]
  - Therapy interrupted [Unknown]

NARRATIVE: CASE EVENT DATE: 20240101
